FAERS Safety Report 7506858-1 (Version None)
Quarter: 2011Q2

REPORT INFORMATION
  Report Type: 
  Country: None (occurrence: None)
  Receive Date: 20110526
  Receipt Date: 20110519
  Transmission Date: 20111010
  Serious: Yes (Hospitalization)
  Sender: FDA-Public Use
  Company Number: B0721358A

PATIENT
  Age: 13 Year
  Sex: Female

DRUGS (4)
  1. VALTREX [Suspect]
     Dosage: 9500MG PER DAY
     Route: 048
     Dates: start: 20110517, end: 20110517
  2. CONCURRENT MEDICATIONS [Suspect]
     Route: 048
  3. UNKNOWN STOMACH MEDICATION [Concomitant]
  4. BENZODIAZEPINE [Concomitant]

REACTIONS (4)
  - NAUSEA [None]
  - RENAL DISORDER [None]
  - SUICIDE ATTEMPT [None]
  - OVERDOSE [None]
